FAERS Safety Report 12766966 (Version 3)
Quarter: 2016Q3

REPORT INFORMATION
  Report Type: Report from Study
  Country: US (occurrence: US)
  Receive Date: 20160921
  Receipt Date: 20160929
  Transmission Date: 20161109
  Serious: Yes (Life-Threatening, Hospitalization, Disabling, Other)
  Sender: FDA-Public Use
  Company Number: US-GILEAD-2016-0234491

PATIENT
  Age: 1 Year
  Sex: Female
  Weight: 9.1 kg

DRUGS (30)
  1. TOBRAMYCIN. [Concomitant]
     Active Substance: TOBRAMYCIN
  2. KEPPRA [Concomitant]
     Active Substance: LEVETIRACETAM
  3. ACETAMINOPHEN. [Concomitant]
     Active Substance: ACETAMINOPHEN
     Dosage: 160 MG, UNK
  4. ALDACTAZIDE [Concomitant]
     Active Substance: HYDROCHLOROTHIAZIDE\SPIRONOLACTONE
  5. SPIRONOLACTONE W/HYDROCHLOROTHIAZIDE [Concomitant]
     Active Substance: HYDROCHLOROTHIAZIDE\SPIRONOLACTONE
     Dosage: 10 MG, BID
  6. AMBRISENTAN [Suspect]
     Active Substance: AMBRISENTAN
     Indication: BRONCHOPULMONARY DYSPLASIA
  7. LACTOBACILLUS [Concomitant]
     Active Substance: LACTOBACILLUS ACIDOPHILUS
  8. AMBRISENTAN [Suspect]
     Active Substance: AMBRISENTAN
     Indication: PULMONARY HYPERTENSION
     Dosage: 2.5 MG, QD
     Route: 048
     Dates: start: 20160520
  9. AMBRISENTAN [Suspect]
     Active Substance: AMBRISENTAN
     Indication: ATRIAL SEPTAL DEFECT
     Dosage: 5 MG, QD
     Route: 048
  10. POLYVISOL                          /06037501/ [Concomitant]
     Dosage: 0.5 ML, BID
     Route: 048
  11. LACOSAMIDE. [Concomitant]
     Active Substance: LACOSAMIDE
     Dosage: 44 MG, BID
  12. AMBRISENTAN [Suspect]
     Active Substance: AMBRISENTAN
     Indication: PATENT DUCTUS ARTERIOSUS
  13. ATROVENT [Concomitant]
     Active Substance: IPRATROPIUM BROMIDE
  14. XOPENEX [Concomitant]
     Active Substance: LEVALBUTEROL HYDROCHLORIDE
     Dosage: 90 UG, QID
     Route: 055
  15. IPRATROPIUM BROMIDE. [Concomitant]
     Active Substance: IPRATROPIUM BROMIDE
     Dosage: 34 UG, BID
     Route: 055
  16. FLUTICASONE [Concomitant]
     Active Substance: FLUTICASONE\FLUTICASONE PROPIONATE
     Dosage: 88 UG, BID
     Route: 055
  17. SIMETHICONE (DIMETHICONE) [Concomitant]
     Active Substance: DIMETHICONE
  18. LANSOPRAZOLE. [Concomitant]
     Active Substance: LANSOPRAZOLE
     Dosage: 16.5 MG, QD
  19. PULMICORT TURBUHALER [Concomitant]
     Active Substance: BUDESONIDE
  20. LASIX [Concomitant]
     Active Substance: FUROSEMIDE
     Dosage: 14.4 MG, TID
     Route: 048
  21. VIMPAT [Concomitant]
     Active Substance: LACOSAMIDE
  22. POTASSIUM CHLORIDE. [Concomitant]
     Active Substance: POTASSIUM CHLORIDE
  23. MELATONIN [Concomitant]
     Active Substance: MELATONIN
     Dosage: 1 MG, QD
     Route: 048
  24. DIPHENHYDRAMINE. [Concomitant]
     Active Substance: DIPHENHYDRAMINE
     Dosage: 8.75 MG, QID
     Route: 048
  25. REVATIO [Concomitant]
     Active Substance: SILDENAFIL CITRATE
     Dosage: 10 MG, TID
     Route: 048
  26. REMODULIN [Concomitant]
     Active Substance: TREPROSTINIL
     Dosage: 21 NG/H
     Route: 058
  27. ARTANE [Concomitant]
     Active Substance: TRIHEXYPHENIDYL HYDROCHLORIDE
     Indication: DYSTONIA
     Dosage: 1 MG, BID
  28. LEVETIRACETAM. [Concomitant]
     Active Substance: LEVETIRACETAM
     Dosage: 440 MG, BID
     Route: 048
  29. MAALOX ANTACID [Concomitant]
     Active Substance: ALUMINUM HYDROXIDE\DIMETHICONE\MAGNESIUM HYDROXIDE
  30. BETHKIS [Concomitant]
     Active Substance: TOBRAMYCIN
     Dosage: 160 MG, BID
     Route: 055

REACTIONS (3)
  - Wrong technique in product usage process [Recovered/Resolved]
  - Cardiac arrest [Recovered/Resolved]
  - Off label use [Not Recovered/Not Resolved]

NARRATIVE: CASE EVENT DATE: 20160830
